FAERS Safety Report 7638683-5 (Version None)
Quarter: 2011Q3

REPORT INFORMATION
  Report Type: 
  Country: None (occurrence: None)
  Receive Date: 20110727
  Receipt Date: 20110722
  Transmission Date: 20111222
  Serious: Yes (Hospitalization)
  Sender: FDA-Public Use
  Company Number: FR-PFIZER INC-2011166507

PATIENT
  Age: 81 Year
  Sex: Female

DRUGS (6)
  1. CIPROFLOXACIN [Suspect]
     Dosage: 500 MG, 2X/DAY
     Route: 048
     Dates: start: 20110208, end: 20110223
  2. POTASSIUM CHLORIDE [Concomitant]
  3. CORDARONE [Concomitant]
  4. PIPERACILLIN AND TAZOBACTAM [Suspect]
     Dosage: 4 G, 3X/DAY
     Route: 042
     Dates: start: 20110208, end: 20110223
  5. LASIX [Concomitant]
  6. PERINDOPRIL ERBUMINE [Concomitant]

REACTIONS (2)
  - HYPOAESTHESIA [None]
  - DYSAESTHESIA [None]
